FAERS Safety Report 5451795-X (Version None)
Quarter: 2007Q3

REPORT INFORMATION
  Report Type: 
  Country: None (occurrence: None)
  Receive Date: 20070913
  Receipt Date: 20070905
  Transmission Date: 20080115
  Serious: Yes (Other)
  Sender: FDA-Public Use
  Company Number: GB-PFIZER INC-2007074451

PATIENT
  Sex: Male
  Weight: 78 kg

DRUGS (4)
  1. VARENICLINE TABLETS [Suspect]
     Route: 048
  2. AMLODIPINE [Concomitant]
     Indication: BLOOD PRESSURE
     Route: 048
  3. BISOPROLOL [Concomitant]
     Indication: BLOOD PRESSURE
     Route: 048
  4. CANDESARTAN CILEXETIL [Concomitant]
     Indication: BLOOD PRESSURE
     Route: 048

REACTIONS (4)
  - DRUG WITHDRAWAL SYNDROME [None]
  - DYSGEUSIA [None]
  - MOOD SWINGS [None]
  - NAUSEA [None]
